FAERS Safety Report 5291432-0 (Version None)
Quarter: 2007Q2

REPORT INFORMATION
  Report Type: 
  Country: None (occurrence: None)
  Receive Date: 20070402
  Receipt Date: 20070322
  Transmission Date: 20071010
  Serious: Yes (Hospitalization)
  Sender: FDA-Public Use
  Company Number: GXKR2007GB02751

PATIENT
  Age: 91 Year
  Sex: Female

DRUGS (8)
  1. ASPIRIN [Suspect]
     Dosage: 75 MG, QD, ORAL
     Route: 048
     Dates: end: 20070219
  2. ATENOLOL [Concomitant]
  3. ATORVASTATIN CALCIUM [Concomitant]
  4. BUMETANIDE [Concomitant]
  5. FERROUS SULPHATE (FERROUS SULFATE) [Concomitant]
  6. FOLIC ACID [Concomitant]
  7. IRBESARTAN [Concomitant]
  8. ZOLPIDEM TARTRATE [Concomitant]

REACTIONS (6)
  - BLOOD CREATININE INCREASED [None]
  - DUODENITIS [None]
  - FAECES DISCOLOURED [None]
  - GASTRIC ULCER [None]
  - HAEMOGLOBIN DECREASED [None]
  - STOMACH DISCOMFORT [None]
